FAERS Safety Report 9237053 (Version 1)
Quarter: 2013Q2

REPORT INFORMATION
  Report Type: Spontaneous
  Country: US (occurrence: None)
  Receive Date: 20130417
  Receipt Date: 20130417
  Transmission Date: 20140414
  Serious: Yes (Hospitalization)
  Sender: FDA-Public Use
  Company Number: None

PATIENT
  Age: 70 Year
  Sex: Male
  Weight: 87.7 kg

DRUGS (2)
  1. WARFARIN [Suspect]
     Indication: ATRIAL FIBRILLATION
     Dosage: ~09/02/2012  THRU  N/A
     Route: 048
     Dates: start: 20120925
  2. CLOPIDOGREL [Suspect]
     Dosage: ~03/01/2000  THRU  N/A
     Route: 048
     Dates: start: 20000301

REACTIONS (7)
  - Dizziness [None]
  - Pain [None]
  - Chills [None]
  - Dyspepsia [None]
  - Anaemia [None]
  - Gastric haemorrhage [None]
  - International normalised ratio abnormal [None]
